FAERS Safety Report 22005794 (Version 1)
Quarter: 2023Q1

REPORT INFORMATION
  Report Type: Spontaneous
  Country: AU (occurrence: AU)
  Receive Date: 20230217
  Receipt Date: 20230217
  Transmission Date: 20230418
  Serious: Yes (Other)
  Sender: FDA-Public Use
  Company Number: AU-BAXTER-2023BAX012588

PATIENT
  Sex: Female

DRUGS (4)
  1. DOXORUBICIN [Suspect]
     Active Substance: DOXORUBICIN
     Indication: Hodgkin^s disease mixed cellularity stage IV
     Dosage: AS A PART OF ABVD REGIMEN X 6 CYCLES FOR 12 DOSES
     Route: 065
  2. VINBLASTINE [Suspect]
     Active Substance: VINBLASTINE
     Indication: Hodgkin^s disease mixed cellularity stage IV
     Dosage: AS A PART OF ABVD REGIMEN X 6 CYCLES FOR 12 DOSES
     Route: 065
  3. DACARBAZINE [Suspect]
     Active Substance: DACARBAZINE
     Indication: Hodgkin^s disease mixed cellularity stage IV
     Dosage: AS A PART OF ABVD REGIMEN X 6 CYCLES FOR 12 DOSES
     Route: 065
  4. BLEOMYCIN [Suspect]
     Active Substance: BLEOMYCIN SULFATE
     Indication: Hodgkin^s disease mixed cellularity stage IV
     Dosage: AS A PART OF ABVD REGIMEN X 6 CYCLES FOR 12 DOSES
     Route: 065

REACTIONS (3)
  - Hodgkin^s disease [Unknown]
  - Hodgkin^s disease mixed cellularity stage unspecified [Unknown]
  - Pulmonary toxicity [Unknown]
